FAERS Safety Report 13948103 (Version 1)
Quarter: 2017Q3

REPORT INFORMATION
  Report Type: Spontaneous
  Country: US (occurrence: US)
  Receive Date: 20170908
  Receipt Date: 20170908
  Transmission Date: 20171128
  Serious: No
  Sender: FDA-Public Use
  Company Number: US-LEO PHARMA-304512

PATIENT
  Sex: Male

DRUGS (1)
  1. PICATO [Suspect]
     Active Substance: INGENOL MEBUTATE
     Indication: ACTINIC KERATOSIS
     Route: 061
     Dates: start: 201705

REACTIONS (7)
  - Application site pain [Recovered/Resolved]
  - Application site vesicles [Not Recovered/Not Resolved]
  - Application site discomfort [Recovered/Resolved]
  - Application site pruritus [Recovered/Resolved]
  - Application site exfoliation [Recovered/Resolved]
  - Incorrect dose administered [Unknown]
  - Application site dryness [Recovered/Resolved]
